FAERS Safety Report 6199614-0 (Version None)
Quarter: 2009Q2

REPORT INFORMATION
  Report Type: 
  Country: None (occurrence: None)
  Receive Date: 20090522
  Receipt Date: 20081210
  Transmission Date: 20091009
  Serious: No
  Sender: FDA-Public Use
  Company Number: A0752811A

PATIENT
  Sex: Female

DRUGS (1)
  1. BACTROBAN [Suspect]
     Indication: SINUS DISORDER
     Dosage: 1G UNKNOWN
     Route: 045

REACTIONS (3)
  - DYSGEUSIA [None]
  - PRODUCT QUALITY ISSUE [None]
  - SINUS HEADACHE [None]
